FAERS Safety Report 23360276 (Version 10)
Quarter: 2024Q2

REPORT INFORMATION
  Report Type: Spontaneous
  Country: CA (occurrence: CA)
  Receive Date: 20240103
  Receipt Date: 20240627
  Transmission Date: 20240716
  Serious: Yes (Other)
  Sender: FDA-Public Use
  Company Number: CA-CELLTRION INC.-2023CA022004

PATIENT

DRUGS (14)
  1. INFLECTRA [Suspect]
     Active Substance: INFLIXIMAB-DYYB
     Indication: Crohn^s disease
     Dosage: 500 MG, WEEKS 0, 2, 6 AND EVERY 4 WEEKS
     Route: 042
     Dates: start: 20231211
  2. INFLECTRA [Suspect]
     Active Substance: INFLIXIMAB-DYYB
     Dosage: 500 MG, WEEKS 0, 2, 6 AND EVERY 4 WEEKS
     Route: 042
     Dates: start: 20231222
  3. INFLECTRA [Suspect]
     Active Substance: INFLIXIMAB-DYYB
     Dosage: 500 MG, WEEKS 0, 2, 6 AND EVERY 4 WEEKS
     Route: 042
     Dates: start: 20240227
  4. INFLECTRA [Suspect]
     Active Substance: INFLIXIMAB-DYYB
     Dosage: 500 MG, WEEKS 0, 2, 6 AND EVERY 4 WEEKS (500 MG, 4 WEEKS AND 1 DAY)
     Route: 042
     Dates: start: 20240327
  5. INFLECTRA [Suspect]
     Active Substance: INFLIXIMAB-DYYB
     Dosage: 500 MG, WEEKS 0, 2, 6 AND EVERY 4 WEEKS (N/A, 3 WEEKS AND 6 DAYS)
     Route: 042
     Dates: start: 20240423
  6. INFLECTRA [Suspect]
     Active Substance: INFLIXIMAB-DYYB
     Dosage: 500 MG, WEEKS 0, 2, 6 AND EVERY 4 WEEKS
     Route: 042
     Dates: start: 20240520
  7. INFLECTRA [Suspect]
     Active Substance: INFLIXIMAB-DYYB
     Dosage: 500 MG, WEEKS 0, 2, 6 AND EVERY 4 WEEKS (4 WEEKS 1 DAYS)
     Route: 042
     Dates: start: 20240618
  8. ACETAMINOPHEN [Concomitant]
     Active Substance: ACETAMINOPHEN
     Indication: Premedication
     Dosage: UNK
     Dates: start: 20240327, end: 20240327
  9. ACETAMINOPHEN [Concomitant]
     Active Substance: ACETAMINOPHEN
     Dosage: UNK
     Dates: start: 20240423, end: 20240423
  10. AZATHIOPRINE [Concomitant]
     Active Substance: AZATHIOPRINE
     Dosage: UNK
  11. DIPHENHYDRAMINE [Concomitant]
     Active Substance: DIPHENHYDRAMINE
     Indication: Premedication
     Dosage: UNK
     Dates: start: 20240327, end: 20240327
  12. DIPHENHYDRAMINE [Concomitant]
     Active Substance: DIPHENHYDRAMINE
     Dosage: UNK
     Dates: start: 20240423, end: 20240423
  13. HYDROCORTISONE [Concomitant]
     Active Substance: HYDROCORTISONE\HYDROCORTISONE ACETATE
     Indication: Premedication
     Dosage: UNK
     Dates: start: 20240327, end: 20240327
  14. HYDROCORTISONE [Concomitant]
     Active Substance: HYDROCORTISONE\HYDROCORTISONE ACETATE
     Dosage: UNK
     Dates: start: 20240423, end: 20240423

REACTIONS (11)
  - Tremor [Recovered/Resolved]
  - Feeling cold [Recovered/Resolved]
  - Blood pressure systolic increased [Unknown]
  - Chills [Recovered/Resolved]
  - Illness [Not Recovered/Not Resolved]
  - Nasopharyngitis [Unknown]
  - Immune system disorder [Unknown]
  - Blood pressure fluctuation [Unknown]
  - Heart rate decreased [Unknown]
  - Off label use [Unknown]
  - Inappropriate schedule of product administration [Unknown]

NARRATIVE: CASE EVENT DATE: 20231201
